FAERS Safety Report 24793579 (Version 3)
Quarter: 2025Q1

REPORT INFORMATION
  Report Type: Spontaneous
  Country: JP (occurrence: JP)
  Receive Date: 20241231
  Receipt Date: 20250131
  Transmission Date: 20250409
  Serious: Yes (Hospitalization, Other)
  Sender: PFIZER
  Company Number: JP-PFIZER INC-PV202400167223

PATIENT
  Age: 81 Year
  Sex: Female
  Weight: 35.2 kg

DRUGS (13)
  1. LORBRENA [Suspect]
     Active Substance: LORLATINIB
     Indication: Lung adenocarcinoma
     Dosage: 75 MG, DAILY, EVERYDAY
     Route: 048
     Dates: start: 20241213, end: 20241220
  2. CARBAZOCHROME [Concomitant]
     Active Substance: CARBAZOCHROME
     Route: 048
  3. TRANEXAMIC ACID [Concomitant]
     Active Substance: TRANEXAMIC ACID
     Route: 048
  4. ROZEREM [Concomitant]
     Active Substance: RAMELTEON
     Route: 048
  5. LANSOPRAZOLE [Concomitant]
     Active Substance: LANSOPRAZOLE
     Route: 048
  6. CODEINE PHOSPHATE [Concomitant]
     Active Substance: CODEINE PHOSPHATE
     Route: 048
  7. AMLODIPINE [Concomitant]
     Active Substance: AMLODIPINE BESYLATE
     Route: 048
  8. DAPAGLIFLOZIN [Concomitant]
     Active Substance: DAPAGLIFLOZIN
     Route: 048
  9. RALOXIFENE [Concomitant]
     Active Substance: RALOXIFENE
     Route: 048
  10. URSODIOL [Concomitant]
     Active Substance: URSODIOL
     Route: 048
  11. MIYA-BM [Concomitant]
     Active Substance: CLOSTRIDIUM BUTYRICUM SPORES STRAIN M-55
     Route: 048
  12. AMBROXOL [Concomitant]
     Active Substance: AMBROXOL
     Route: 048
  13. ATORVASTATIN [Concomitant]
     Active Substance: ATORVASTATIN

REACTIONS (3)
  - Hallucination, auditory [Recovered/Resolved]
  - Tinnitus [Unknown]
  - Haemoptysis [Unknown]

NARRATIVE: CASE EVENT DATE: 20241213
